FAERS Safety Report 14701111 (Version 1)
Quarter: 2018Q1

REPORT INFORMATION
  Report Type: Spontaneous
  Country: US (occurrence: US)
  Receive Date: 20180328
  Receipt Date: 20180328
  Transmission Date: 20180509
  Serious: Yes (Hospitalization)
  Sender: FDA-Public Use
  Company Number: None

PATIENT
  Age: 77 Year
  Sex: Male
  Weight: 109 kg

DRUGS (1)
  1. DOFETILIDE. [Suspect]
     Active Substance: DOFETILIDE
     Indication: ATRIAL FIBRILLATION
     Route: 048
     Dates: start: 20150625, end: 20180313

REACTIONS (4)
  - Ventricular tachycardia [None]
  - Electrocardiogram QT prolonged [None]
  - Syncope [None]
  - Hypokalaemia [None]

NARRATIVE: CASE EVENT DATE: 20180313
